FAERS Safety Report 8220805-9 (Version None)
Quarter: 2012Q1

REPORT INFORMATION
  Report Type: 
  Country: None (occurrence: None)
  Receive Date: 20120319
  Receipt Date: 20120312
  Transmission Date: 20120608
  Serious: Yes (Hospitalization)
  Sender: FDA-Public Use
  Company Number: JP-VERTEX PHARMACEUTICALS INC.-AE-2012-003682

PATIENT
  Age: 65 Year
  Sex: Female

DRUGS (8)
  1. URSO 250 [Concomitant]
  2. RIBAVIRIN [Concomitant]
     Route: 048
     Dates: start: 20120227, end: 20120303
  3. OLMESARTAN MEDOXOMIL [Concomitant]
  4. PEGINTERFERON [Concomitant]
     Indication: HEPATITIS C
     Route: 058
     Dates: start: 20120117, end: 20120303
  5. RIBAVIRIN [Concomitant]
     Indication: HEPATITIS C
     Route: 048
     Dates: start: 20120117
  6. TELAVIC (TELAPREVIR) [Suspect]
     Indication: HEPATITIS C
     Route: 048
     Dates: start: 20120117, end: 20120303
  7. LANSOPRAZOLE [Concomitant]
  8. LENDEM [Concomitant]

REACTIONS (1)
  - DECREASED APPETITE [None]
